FAERS Safety Report 7263270-0 (Version None)
Quarter: 2011Q1

REPORT INFORMATION
  Report Type: 
  Country: None (occurrence: None)
  Receive Date: 20110130
  Receipt Date: 20101015
  Transmission Date: 20110831
  Serious: No
  Sender: FDA-Public Use
  Company Number: US-ABBOTT-10P-163-0678584-00

PATIENT
  Sex: Male
  Weight: 108.96 kg

DRUGS (2)
  1. UNKNOWN INHALER [Concomitant]
     Indication: ASTHMA
  2. HUMIRA [Suspect]
     Indication: UVEITIS
     Dates: start: 20100701

REACTIONS (3)
  - NASOPHARYNGITIS [None]
  - WHEEZING [None]
  - BRONCHITIS [None]
